FAERS Safety Report 5148516-7 (Version None)
Quarter: 2006Q4

REPORT INFORMATION
  Report Type: 
  Country: None (occurrence: None)
  Receive Date: 20060918
  Receipt Date: 20060602
  Transmission Date: 20070319
  Serious: Yes (Other)
  Sender: FDA-Public Use
  Company Number: US-JNJFOC-20060500578

PATIENT
  Age: 58 Year
  Sex: Female
  Weight: 105.2345 kg

DRUGS (4)
  1. TOPAMAX [Suspect]
     Indication: MIGRAINE PROPHYLAXIS
     Dosage: INITIAL DOSE 25 MG; INCREASED TO 50 MG
     Dates: start: 20060126, end: 20060201
  2. ATENOLOL [Concomitant]
  3. NORVASC [Concomitant]
  4. DYAZIDE [Concomitant]

REACTIONS (2)
  - BLOOD POTASSIUM DECREASED [None]
  - RASH [None]
